FAERS Safety Report 8330608-2 (Version None)
Quarter: 2012Q2

REPORT INFORMATION
  Report Type: 
  Country: None (occurrence: None)
  Receive Date: 20120502
  Receipt Date: 20120405
  Transmission Date: 20120825
  Serious: No
  Sender: FDA-Public Use
  Company Number: US-AMGEN-USASP2012021820

PATIENT
  Age: 50 Year
  Sex: Female

DRUGS (2)
  1. ENBREL [Suspect]
     Indication: PSORIATIC ARTHROPATHY
     Dosage: 50 MG, 2 TIMES/WK
     Dates: start: 20040101, end: 20060101
  2. ENBREL [Suspect]
     Indication: PSORIASIS

REACTIONS (6)
  - PSORIATIC ARTHROPATHY [None]
  - FINGER DEFORMITY [None]
  - NECK PAIN [None]
  - BACK PAIN [None]
  - PSORIASIS [None]
  - NAIL PSORIASIS [None]
